FAERS Safety Report 5336325-5 (Version None)
Quarter: 2007Q2

REPORT INFORMATION
  Report Type: 
  Country: None (occurrence: None)
  Receive Date: 20070523
  Receipt Date: 20070514
  Transmission Date: 20071010
  Serious: Yes (Other)
  Sender: FDA-Public Use
  Company Number: 430046K07USA

PATIENT
  Age: 66 Year
  Sex: Male
  Weight: 69.4003 kg

DRUGS (4)
  1. NOVANTRONE [Suspect]
     Indication: MULTIPLE SCLEROSIS
     Dosage: 1 IN 3 MONTHS, INTRAVENOUS (NOT OTHERWISE SPECIFIED)
     Route: 042
     Dates: start: 20041101, end: 20061201
  2. AVONEX [Suspect]
     Dosage: 30 MCG, 1 IN 1 WEEKS,
     Dates: start: 19990101
  3. HYZAAR [Concomitant]
  4. GLIPIZIDE [Concomitant]

REACTIONS (1)
  - EJECTION FRACTION DECREASED [None]
